FAERS Safety Report 7734737-3 (Version None)
Quarter: 2011Q3

REPORT INFORMATION
  Report Type: 
  Country: None (occurrence: None)
  Receive Date: 20110907
  Receipt Date: 20110829
  Transmission Date: 20111222
  Serious: Yes (Hospitalization, Other)
  Sender: FDA-Public Use
  Company Number: US-GENZYME-FABR-1002024

PATIENT
  Sex: Male

DRUGS (1)
  1. FABRAZYME [Suspect]
     Indication: FABRY'S DISEASE
     Dosage: 105 MG, Q4W
     Route: 042
     Dates: start: 20061220

REACTIONS (3)
  - CARDIAC FAILURE [None]
  - MULTI-ORGAN FAILURE [None]
  - PYREXIA [None]
